FAERS Safety Report 20465601 (Version 1)
Quarter: 2022Q1

REPORT INFORMATION
  Report Type: Report from Study
  Country: ZA (occurrence: ZA)
  Receive Date: 20220212
  Receipt Date: 20220212
  Transmission Date: 20220424
  Serious: Yes (Other)
  Sender: FDA-Public Use
  Company Number: ZA-BAYER-2022A018707

PATIENT

DRUGS (2)
  1. EYLEA [Suspect]
     Active Substance: AFLIBERCEPT
     Indication: Age-related macular degeneration
     Dosage: UNK
     Route: 031
     Dates: start: 20210513
  2. EYLEA [Suspect]
     Active Substance: AFLIBERCEPT
     Dosage: 1 DF, ONCE, BILATERAL
     Route: 031
     Dates: start: 20211206, end: 20211206

REACTIONS (3)
  - Macular oedema [Unknown]
  - Eye discharge [Unknown]
  - Visual acuity reduced [Unknown]
